FAERS Safety Report 4715272-3 (Version None)
Quarter: 2005Q3

REPORT INFORMATION
  Report Type: 
  Country: None (occurrence: None)
  Receive Date: 20050715
  Receipt Date: 20050704
  Transmission Date: 20060218
  Serious: Yes (Hospitalization, Disabling)
  Sender: FDA-Public Use
  Company Number: 2005GB01278

PATIENT
  Age: 43 Year
  Sex: Female

DRUGS (3)
  1. QUETIAPINE FUMARATE [Suspect]
     Indication: AFFECTIVE DISORDER
     Route: 048
  2. VALPROATE SODIUM [Concomitant]
     Indication: AFFECTIVE DISORDER
     Dosage: 500MG + 1200MG
     Route: 048
     Dates: start: 20040101
  3. CAMCOLIT [Concomitant]
     Indication: AFFECTIVE DISORDER
     Route: 048
     Dates: start: 20030101

REACTIONS (5)
  - CORNEAL REFLEX DECREASED [None]
  - DIZZINESS POSTURAL [None]
  - FALL [None]
  - NYSTAGMUS [None]
  - SYNCOPE [None]
